FAERS Safety Report 22063028 (Version 1)
Quarter: 2023Q1

REPORT INFORMATION
  Report Type: Spontaneous
  Country: CA (occurrence: None)
  Receive Date: 20230306
  Receipt Date: 20230306
  Transmission Date: 20230417
  Serious: Yes (Other)
  Sender: FDA-Public Use
  Company Number: CA-ROCHE-3297461

PATIENT
  Age: 70 Year
  Sex: Male

DRUGS (18)
  1. RITUXIMAB [Suspect]
     Active Substance: RITUXIMAB
     Indication: Immune thrombocytopenia
     Route: 041
  2. RITUXIMAB [Suspect]
     Active Substance: RITUXIMAB
     Route: 041
  3. RITUXIMAB [Suspect]
     Active Substance: RITUXIMAB
     Route: 041
  4. RITUXIMAB [Suspect]
     Active Substance: RITUXIMAB
     Route: 041
  5. RITUXIMAB [Suspect]
     Active Substance: RITUXIMAB
     Route: 041
  6. ROSUVASTATIN CALCIUM [Concomitant]
     Active Substance: ROSUVASTATIN CALCIUM
  7. LINAGLIPTIN [Concomitant]
     Active Substance: LINAGLIPTIN
  8. ACETAMINOPHEN [Concomitant]
     Active Substance: ACETAMINOPHEN
     Route: 048
  9. ALLOPURINOL [Concomitant]
     Active Substance: ALLOPURINOL
  10. AZATHIOPRINE [Concomitant]
     Active Substance: AZATHIOPRINE
  11. DILTIAZEM [Concomitant]
     Active Substance: DILTIAZEM
  12. DIPHENHYDRAMINE [Concomitant]
     Active Substance: DIPHENHYDRAMINE
  13. EMPAGLIFLOZIN [Concomitant]
     Active Substance: EMPAGLIFLOZIN
  14. INSULIN NOS [Concomitant]
     Active Substance: INSULIN NOS
  15. LANSOPRAZOLE [Concomitant]
     Active Substance: LANSOPRAZOLE
  16. METHYLPREDNISOLONE [Concomitant]
     Active Substance: METHYLPREDNISOLONE
  17. PERINDOPRIL [Concomitant]
     Active Substance: PERINDOPRIL
  18. PREDNISONE [Concomitant]
     Active Substance: PREDNISONE

REACTIONS (6)
  - Blood pressure increased [Recovered/Resolved]
  - Constipation [Recovered/Resolved]
  - Discomfort [Recovered/Resolved]
  - Haemoglobin increased [Recovered/Resolved]
  - Injection site pain [Recovered/Resolved]
  - Proctalgia [Recovered/Resolved]
